FAERS Safety Report 13407976 (Version 1)
Quarter: 2017Q2

REPORT INFORMATION
  Report Type: Spontaneous
  Country: US (occurrence: US)
  Receive Date: 20170406
  Receipt Date: 20170406
  Transmission Date: 20170830
  Serious: No
  Sender: FDA-Public Use
  Company Number: US-ALKABELLO-2017AA000762

PATIENT
  Age: 48 Year
  Sex: Female
  Weight: 58.97 kg

DRUGS (4)
  1. SYMBICORT [Concomitant]
     Active Substance: BUDESONIDE\FORMOTEROL FUMARATE DIHYDRATE
  2. RAGWITEK [Suspect]
     Active Substance: AMBROSIA ARTEMISIIFOLIA POLLEN
     Route: 060
     Dates: start: 20160506, end: 20160605
  3. RAGWITEK [Suspect]
     Active Substance: AMBROSIA ARTEMISIIFOLIA POLLEN
     Route: 060
     Dates: start: 20160506, end: 20160605
  4. NASONEX [Concomitant]
     Active Substance: MOMETASONE FUROATE

REACTIONS (2)
  - Acne [Unknown]
  - Pruritus [Unknown]

NARRATIVE: CASE EVENT DATE: 20160515
